FAERS Safety Report 24767517 (Version 1)
Quarter: 2024Q4

REPORT INFORMATION
  Report Type: Spontaneous
  Country: US (occurrence: None)
  Receive Date: 20241223
  Receipt Date: 20241223
  Transmission Date: 20250115
  Serious: Yes (Death)
  Sender: Public
  Company Number: None

PATIENT
  Sex: Male

DRUGS (5)
  1. KESIMPTA [Suspect]
     Active Substance: OFATUMUMAB
     Indication: Multiple sclerosis
     Dosage: FREQUENCY : MONTHLY;?
     Route: 058
     Dates: start: 20240406
  2. BACLOFEN [Concomitant]
     Active Substance: BACLOFEN
  3. LOVENOX INJ 40/0.4ML [Concomitant]
  4. MYOFLEX CRE 10%i [Concomitant]
  5. POT CHLORIDE TAB 20MEO ER [Concomitant]

REACTIONS (1)
  - Death [None]
